FAERS Safety Report 17983985 (Version 1)
Quarter: 2020Q3

REPORT INFORMATION
  Report Type: Spontaneous
  Country: US (occurrence: US)
  Receive Date: 20200706
  Receipt Date: 20200706
  Transmission Date: 20201103
  Serious: No
  Sender: FDA-Public Use
  Company Number: US-009507513-2006USA007059

PATIENT
  Age: 43 Year
  Sex: Female

DRUGS (13)
  1. AZITHROMYCIN ANHYDROUS. [Concomitant]
     Active Substance: AZITHROMYCIN ANHYDROUS
  2. LEUPROLIDE [Suspect]
     Active Substance: LEUPROLIDE
  3. BENZONATATE. [Concomitant]
     Active Substance: BENZONATATE
  4. DOXYCYCLINE HYCLATE. [Concomitant]
     Active Substance: DOXYCYCLINE HYCLATE
  5. ESTRADIOL. [Concomitant]
     Active Substance: ESTRADIOL
  6. GONADOTROPIN, CHORIONIC [Concomitant]
     Active Substance: CHORIOGONADOTROPIN ALFA
  7. NORTREL (LEVONORGESTREL) [Concomitant]
     Active Substance: LEVONORGESTREL
  8. OVIDREL [Concomitant]
     Active Substance: CHORIOGONADOTROPIN ALFA
  9. GANIRELIX ACETATE. [Concomitant]
     Active Substance: GANIRELIX ACETATE
  10. FOLLISTIM AQ [Suspect]
     Active Substance: FOLLITROPIN
  11. ENDOMETRIN [Concomitant]
     Active Substance: PROGESTERONE
  12. MENOPUR [Concomitant]
     Active Substance: FOLLITROPIN\LUTEINIZING HORMONE
  13. FOLLISTIM AQ [Suspect]
     Active Substance: FOLLITROPIN
     Indication: INFERTILITY FEMALE
     Dosage: 450 UNITS, 10?14 D, SQ
     Route: 058
     Dates: start: 20190720

REACTIONS (1)
  - Diarrhoea [Unknown]

NARRATIVE: CASE EVENT DATE: 20200612
